FAERS Safety Report 17005038 (Version 1)
Quarter: 2019Q4

REPORT INFORMATION
  Report Type: Spontaneous
  Country: US (occurrence: US)
  Receive Date: 20191107
  Receipt Date: 20191107
  Transmission Date: 20200122
  Serious: No
  Sender: FDA-Public Use
  Company Number: US-JNJFOC-20191105808

PATIENT
  Age: 63 Year
  Sex: Female
  Weight: 59.02 kg

DRUGS (1)
  1. SIMPONI [Suspect]
     Active Substance: GOLIMUMAB
     Indication: ANKYLOSING SPONDYLITIS
     Route: 058
     Dates: start: 2018

REACTIONS (1)
  - Laryngitis [Recovering/Resolving]

NARRATIVE: CASE EVENT DATE: 20191031
